FAERS Safety Report 8592719-6 (Version None)
Quarter: 2012Q3

REPORT INFORMATION
  Report Type: 
  Country: None (occurrence: None)
  Receive Date: 20120814
  Receipt Date: 20120711
  Transmission Date: 20120928
  Serious: No
  Sender: FDA-Public Use
  Company Number: US-COVIDIEN/TYCO HEALTHCARE/MALLINCKRODT-T201202791

PATIENT
  Sex: Female
  Weight: 77.551 kg

DRUGS (14)
  1. WARFARIN SODIUM [Concomitant]
     Indication: ANTICOAGULANT THERAPY
     Dosage: UNK
  2. VITAMIN B12                        /00056201/ [Concomitant]
     Indication: SUPPLEMENTATION THERAPY
     Dosage: UNK
  3. FENTANYL [Suspect]
     Indication: PAIN
     Dosage: 75 MCG/HR Q 48 HRS
     Route: 062
     Dates: start: 20120704
  4. COZAAR [Concomitant]
     Indication: CARDIAC DISORDER
     Dosage: UNK
  5. ZANTAC [Concomitant]
     Indication: GASTROINTESTINAL DISORDER
     Dosage: UNK
  6. BENADRYL [Concomitant]
     Indication: HYPERSENSITIVITY
     Dosage: UNK
  7. FENTANYL [Concomitant]
     Indication: PAIN
  8. VOLTAREN [Concomitant]
     Indication: BACK PAIN
     Dosage: UNK
  9. COLACE [Concomitant]
     Indication: CONSTIPATION
     Dosage: UNK
  10. CELEXA [Concomitant]
     Indication: DEPRESSION
     Dosage: UNK
  11. TOPROL-XL [Concomitant]
     Indication: BLOOD PRESSURE
     Dosage: UNK
  12. OXYCODONE [Concomitant]
     Indication: PAIN
     Dosage: 10 MG, UNK
  13. LANOXIN [Concomitant]
     Indication: HEART RATE ABNORMAL
     Dosage: UNK
  14. VITAMIN D [Concomitant]
     Indication: SUPPLEMENTATION THERAPY
     Dosage: UNK

REACTIONS (3)
  - APPLICATION SITE PRURITUS [None]
  - APPLICATION SITE ERYTHEMA [None]
  - APPLICATION SITE SCAB [None]
